FAERS Safety Report 4407902-0 (Version None)
Quarter: 2004Q3

REPORT INFORMATION
  Report Type: 
  Country: None (occurrence: None)
  Receive Date: 20040721
  Receipt Date: 20040706
  Transmission Date: 20050211
  Serious: No
  Sender: FDA-Public Use
  Company Number: 207644

PATIENT
  Age: 60 Year
  Sex: Female
  Weight: 67.1 kg

DRUGS (5)
  1. RITUXAN [Suspect]
     Indication: NON-HODGKIN'S LYMPHOMA
     Dosage: 375 MG/M2, 1/WEEK, INTRAVENOUS
     Route: 042
     Dates: start: 20030708, end: 20030801
  2. RITUXAN [Suspect]
     Indication: NON-HODGKIN'S LYMPHOMA
     Dosage: 375 MG/M2, 1/WEEK, INTRAVENOUS
     Route: 042
     Dates: start: 20040106, end: 20040706
  3. SYNTHROID [Concomitant]
  4. HORMONAL REPLACEMENT (HORMONES NOS) [Concomitant]
  5. VITAMINS (VITAMINS NOS) [Concomitant]

REACTIONS (5)
  - ESSENTIAL TREMOR [None]
  - HYPERTONIA [None]
  - MOVEMENT DISORDER [None]
  - NUCLEAR MAGNETIC RESONANCE IMAGING BRAIN ABNORMAL [None]
  - STRESS SYMPTOMS [None]
